FAERS Safety Report 5489399-5 (Version None)
Quarter: 2007Q4

REPORT INFORMATION
  Report Type: 
  Country: None (occurrence: None)
  Receive Date: 20071018
  Receipt Date: 20071010
  Transmission Date: 20080405
  Serious: Yes (Disabling)
  Sender: FDA-Public Use
  Company Number: GR-ELI_LILLY_AND_COMPANY-GR200709002514

PATIENT
  Age: 60 Year
  Sex: Male

DRUGS (2)
  1. TADALAFIL [Suspect]
     Dosage: 20 MG, DAILY (1/D)
     Route: 048
  2. HMG COA REDUCTASE INHIBITORS [Interacting]
     Indication: DYSLIPIDAEMIA
     Dosage: 40 MG, DAILY (1/D)

REACTIONS (3)
  - DRUG INTERACTION [None]
  - MYALGIA [None]
  - RESTLESSNESS [None]
